FAERS Safety Report 4867374-9 (Version None)
Quarter: 2005Q4

REPORT INFORMATION
  Report Type: 
  Country: None (occurrence: None)
  Receive Date: 20051222
  Receipt Date: 20051209
  Transmission Date: 20060501
  Serious: Yes (Other)
  Sender: FDA-Public Use
  Company Number: US200512001624

PATIENT
  Age: 15 Year
  Sex: Male
  Weight: 59.6 kg

DRUGS (3)
  1. STRATTERA [Suspect]
     Indication: ATTENTION DEFICIT/HYPERACTIVITY DISORDER
     Dosage: 60 MG, DAILY (1/D),
     Dates: start: 20050101
  2. CONSERTA SR (METHYLPHENIDATE HYDROCHLORIDE) [Concomitant]
  3. AMOXICILLIN [Concomitant]

REACTIONS (7)
  - ALANINE AMINOTRANSFERASE INCREASED [None]
  - ASPARTATE AMINOTRANSFERASE INCREASED [None]
  - BLOOD ALKALINE PHOSPHATASE INCREASED [None]
  - INTENTIONAL OVERDOSE [None]
  - MONONUCLEOSIS HETEROPHILE TEST POSITIVE [None]
  - RASH GENERALISED [None]
  - SUICIDE ATTEMPT [None]
